FAERS Safety Report 10176653 (Version 1)
Quarter: 2014Q2

REPORT INFORMATION
  Report Type: Spontaneous
  Country: IN (occurrence: None)
  Receive Date: 20140514
  Receipt Date: 20140514
  Transmission Date: 20141212
  Serious: Yes (Congenital Anomaly)
  Sender: FDA-Public Use
  Company Number: IMP_07629_2014

PATIENT
  Sex: Male

DRUGS (2)
  1. VALPROIC ACID [Suspect]
     Indication: MATERNAL EXPOSURE DURING PREGNANCY
     Route: 064
  2. FOLIC ACID [Concomitant]

REACTIONS (10)
  - Foetal exposure during pregnancy [None]
  - Foetal anticonvulsant syndrome [None]
  - Caesarean section [None]
  - Childhood disintegrative disorder [None]
  - Speech disorder developmental [None]
  - Anisometropia [None]
  - Astigmatism [None]
  - Dysmorphism [None]
  - Hypotelorism of orbit [None]
  - Maternal drugs affecting foetus [None]
